FAERS Safety Report 9632272 (Version 3)
Quarter: 2014Q1

REPORT INFORMATION
  Report Type: Spontaneous
  Country: JP (occurrence: JP)
  Receive Date: 20131018
  Receipt Date: 20140311
  Transmission Date: 20141002
  Serious: Yes (Hospitalization)
  Sender: FDA-Public Use
  Company Number: PHHY2013JP116937

PATIENT
  Sex: Male

DRUGS (2)
  1. DICLOFENAC [Suspect]
     Indication: PYREXIA
     Dosage: 150 MG, DAILY
     Route: 048
  2. DICLOFENAC [Suspect]
     Indication: PAIN

REACTIONS (12)
  - Small intestinal haemorrhage [Unknown]
  - Duodenitis [Unknown]
  - Abdominal pain [Unknown]
  - Haematochezia [Unknown]
  - Abdominal tenderness [Unknown]
  - Inflammation [Recovering/Resolving]
  - Pyrexia [Recovering/Resolving]
  - Arterial haemorrhage [Unknown]
  - Jejunal ulcer [Unknown]
  - C-reactive protein increased [Unknown]
  - White blood cell count increased [Unknown]
  - Gastrointestinal disorder [Unknown]
